FAERS Safety Report 17577434 (Version 1)
Quarter: 2020Q1

REPORT INFORMATION
  Report Type: Spontaneous
  Country: US (occurrence: US)
  Receive Date: 20200324
  Receipt Date: 20200324
  Transmission Date: 20200409
  Serious: Yes (Hospitalization, Other)
  Sender: FDA-Public Use
  Company Number: US-SAOL THERAPEUTICS-0700879834

PATIENT
  Age: 24 Year
  Sex: Female

DRUGS (2)
  1. LIORESAL [Suspect]
     Active Substance: BACLOFEN
     Dosage: 1005.3 ?G, \DAY
     Route: 037
     Dates: start: 20150307
  2. LIORESAL [Suspect]
     Active Substance: BACLOFEN
     Indication: MUSCLE SPASTICITY
     Dosage: 1006.2 ?G, \DAY
     Route: 037
     Dates: end: 20150307

REACTIONS (22)
  - Pruritus [Recovered/Resolved]
  - Musculoskeletal stiffness [Recovered/Resolved]
  - Anxiety [Unknown]
  - Implant site extravasation [Recovered/Resolved]
  - Device infusion issue [Recovered/Resolved]
  - Tachycardia [Recovered/Resolved]
  - Urinary retention [Not Recovered/Not Resolved]
  - Panic attack [Not Recovered/Not Resolved]
  - Pain [Unknown]
  - Drug withdrawal syndrome [Recovered/Resolved]
  - Hypertonia [Recovered/Resolved]
  - Underdose [Recovered/Resolved]
  - Therapy non-responder [Recovered/Resolved]
  - Dyspnoea [Recovered/Resolved]
  - Dysphemia [Not Recovered/Not Resolved]
  - Overdose [Recovered/Resolved]
  - Tremor [Recovered/Resolved]
  - Blood pressure increased [Recovered/Resolved]
  - Hyperthermia [Recovered/Resolved]
  - Formication [Recovered/Resolved]
  - Device failure [Recovered/Resolved]
  - Complication associated with device [Recovered/Resolved]

NARRATIVE: CASE EVENT DATE: 201503
